FAERS Safety Report 9179662 (Version 1)
Quarter: 2012Q4

REPORT INFORMATION
  Report Type: 
  Country: AT (occurrence: AT)
  Receive Date: 20121029
  Receipt Date: 20121029
  Transmission Date: 20130627
  Serious: Yes (Other)
  Sender: FDA-Public Use
  Company Number: AT-VIIV HEALTHCARE LIMITED-B0840924A

PATIENT
  Age: 42 Year
  Sex: Male

DRUGS (2)
  1. KIVEXA [Suspect]
     Indication: PRODUCT USED FOR UNKNOWN INDICATION
     Route: 065
  2. PROTEASE INHIBITOR [Concomitant]

REACTIONS (1)
  - Myocardial infarction [Unknown]
